FAERS Safety Report 9178101 (Version 1)
Quarter: 2013Q1

REPORT INFORMATION
  Report Type: Spontaneous
  Country: US (occurrence: US)
  Receive Date: 20130321
  Receipt Date: 20130321
  Transmission Date: 20140127
  Serious: Yes (Hospitalization, Disabling)
  Sender: FDA-Public Use
  Company Number: US-PFIZER INC-2013090361

PATIENT
  Age: 50 Year
  Sex: Female

DRUGS (5)
  1. OXALIPLATIN [Suspect]
     Indication: CHEMOTHERAPY
     Dosage: 85 MG/M2, DAY 1
     Route: 042
  2. FLUOROURACIL [Suspect]
     Indication: CHEMOTHERAPY
     Dosage: 400 MG/M2, UNK
     Route: 040
  3. FLUOROURACIL [Suspect]
     Dosage: 2400 MG/M2, OVER 46 HOURS
     Route: 042
  4. LEUCOVORIN [Suspect]
     Indication: CHEMOTHERAPY
     Dosage: 400 MG/M2, OVER 2 HOURS
     Route: 042
  5. BEVACIZUMAB [Suspect]
     Indication: CHEMOTHERAPY
     Dosage: 5 MG/KG, EVERY 2 WEEKS

REACTIONS (13)
  - Asthenia [Unknown]
  - Febrile neutropenia [Recovered/Resolved]
  - Alopecia [Unknown]
  - Dysphagia [Unknown]
  - Mucosal inflammation [Unknown]
  - Palmar-plantar erythrodysaesthesia syndrome [Unknown]
  - Skin exfoliation [Unknown]
  - Paraesthesia [Unknown]
  - Photophobia [Unknown]
  - Balance disorder [Unknown]
  - Dysarthria [Not Recovered/Not Resolved]
  - Dysphonia [Unknown]
  - Throat tightness [Unknown]
